FAERS Safety Report 5903205-3 (Version None)
Quarter: 2008Q3

REPORT INFORMATION
  Report Type: 
  Country: None (occurrence: None)
  Receive Date: 20080930
  Receipt Date: 20080925
  Transmission Date: 20090109
  Serious: Yes (Death)
  Sender: FDA-Public Use
  Company Number: GB-JNJFOC-20080905916

PATIENT
  Age: 7 Year
  Sex: Male
  Weight: 23 kg

DRUGS (4)
  1. DURAGESIC-100 [Suspect]
     Indication: PAIN
     Route: 062
  2. FEIBA [Concomitant]
     Indication: HAEMOPHILIA
     Route: 042
  3. ORAMORPH SR [Concomitant]
     Route: 048
  4. FANOHI [Concomitant]
     Indication: HAEMOPHILIA
     Route: 042

REACTIONS (1)
  - DEATH [None]
